FAERS Safety Report 6184231-9 (Version None)
Quarter: 2009Q2

REPORT INFORMATION
  Report Type: 
  Country: None (occurrence: None)
  Receive Date: 20090508
  Receipt Date: 20090427
  Transmission Date: 20091009
  Serious: Yes (Hospitalization)
  Sender: FDA-Public Use
  Company Number: PHHY2009BE15411

PATIENT
  Age: 35 Year
  Sex: Female

DRUGS (5)
  1. METHERGINE [Suspect]
     Indication: POSTPARTUM HAEMORRHAGE
     Dosage: UNK
     Dates: start: 20090412
  2. SYNTOCINON [Concomitant]
     Indication: POSTPARTUM HAEMORRHAGE
  3. CYTOTEC [Concomitant]
     Indication: POSTPARTUM HAEMORRHAGE
  4. VOLUVEN [Concomitant]
     Indication: POSTPARTUM HAEMORRHAGE
  5. EXACYL [Concomitant]
     Indication: POSTPARTUM HAEMORRHAGE

REACTIONS (8)
  - BODY TEMPERATURE INCREASED [None]
  - CYANOSIS [None]
  - HYPERTENSION [None]
  - HYPERVENTILATION [None]
  - HYPOTENSION [None]
  - LIVEDO RETICULARIS [None]
  - OXYGEN SATURATION DECREASED [None]
  - TREMOR [None]
